FAERS Safety Report 25644134 (Version 1)
Quarter: 2025Q3

REPORT INFORMATION
  Report Type: Other
  Country: US (occurrence: US)
  Receive Date: 20250805
  Receipt Date: 20250805
  Transmission Date: 20251021
  Serious: Yes (Hospitalization, Other)
  Sender: ANI
  Company Number: US-ANIPHARMA-023907

PATIENT
  Age: 78 Year
  Sex: Male

DRUGS (6)
  1. LORAZEPAM [Suspect]
     Active Substance: LORAZEPAM
     Indication: Catatonia
  2. METHYLPHENIDATE [Suspect]
     Active Substance: METHYLPHENIDATE
     Indication: Catatonia
  3. MEMANTINE [Suspect]
     Active Substance: MEMANTINE
     Indication: Catatonia
  4. METHYLPREDNISOLONE [Concomitant]
     Active Substance: METHYLPREDNISOLONE
     Indication: Autoimmune hepatitis
  5. ZOLPIDEM [Concomitant]
     Active Substance: ZOLPIDEM TARTRATE
     Indication: Catatonia
  6. AMANTADINE [Concomitant]
     Active Substance: AMANTADINE
     Indication: Catatonia

REACTIONS (4)
  - Duodenal perforation [Unknown]
  - Sedation [Unknown]
  - Tachycardia [Unknown]
  - Off label use [Unknown]
